FAERS Safety Report 8599409-4 (Version None)
Quarter: 2012Q3

REPORT INFORMATION
  Report Type: 
  Country: None (occurrence: None)
  Receive Date: 20120816
  Receipt Date: 20120807
  Transmission Date: 20120928
  Serious: Yes (Hospitalization)
  Sender: FDA-Public Use
  Company Number: US-ASTRAZENECA-2012SE31649

PATIENT
  Sex: Female

DRUGS (5)
  1. PHENERGAN HCL [Concomitant]
  2. BUTALBITAL ACETAMINOPHEN CAFFEINE [Concomitant]
  3. PRILOSEC OTC [Suspect]
     Indication: DYSPEPSIA
     Dosage: ONCE OR TWICE DAILY
     Route: 048
  4. PRILOSEC [Suspect]
     Route: 048
  5. MULTI-VITAMINS [Concomitant]

REACTIONS (5)
  - HEADACHE [None]
  - OFF LABEL USE [None]
  - MATERNAL EXPOSURE DURING PREGNANCY [None]
  - NERVE COMPRESSION [None]
  - VOMITING [None]
